FAERS Safety Report 22238077 (Version 2)
Quarter: 2023Q2

REPORT INFORMATION
  Report Type: Spontaneous
  Country: DE (occurrence: DE)
  Receive Date: 20230421
  Receipt Date: 20230428
  Transmission Date: 20230722
  Serious: Yes (Other)
  Sender: FDA-Public Use
  Company Number: DE-IPSEN Group, Research and Development-2023-08857

PATIENT
  Age: 32 Year
  Sex: Male

DRUGS (13)
  1. CABOMETYX [Suspect]
     Active Substance: CABOZANTINIB S-MALATE
     Indication: Renal cell carcinoma
     Dosage: UNK
     Route: 048
     Dates: start: 202202
  2. CABOMETYX [Suspect]
     Active Substance: CABOZANTINIB S-MALATE
     Dosage: 20 MG, QD
     Route: 048
  3. CABOMETYX [Suspect]
     Active Substance: CABOZANTINIB S-MALATE
     Dosage: 40 MG, QD
     Route: 065
     Dates: start: 20220303, end: 20220316
  4. CABOMETYX [Suspect]
     Active Substance: CABOZANTINIB S-MALATE
     Dosage: 60 MG, QD
     Route: 065
     Dates: start: 20220316, end: 20220713
  5. CABOMETYX [Suspect]
     Active Substance: CABOZANTINIB S-MALATE
     Dosage: 60 MG, QD
     Route: 065
     Dates: start: 20220728, end: 20220731
  6. CABOMETYX [Suspect]
     Active Substance: CABOZANTINIB S-MALATE
     Dosage: 20 MG, QD
     Route: 065
     Dates: start: 20220801, end: 20221130
  7. NIVOLUMAB [Suspect]
     Active Substance: NIVOLUMAB
     Indication: Renal cell carcinoma
     Dosage: UNK
     Dates: start: 202212
  8. IPILIMUMAB [Suspect]
     Active Substance: IPILIMUMAB
     Indication: Renal cell carcinoma
     Dosage: UNK
     Dates: start: 202212
  9. EVEROLIMUS [Suspect]
     Active Substance: EVEROLIMUS
     Indication: Renal cell carcinoma
     Dosage: UNK
     Dates: start: 202302
  10. LENVATINIB [Suspect]
     Active Substance: LENVATINIB
     Indication: Renal cell carcinoma
     Dosage: UNK
     Dates: start: 202302
  11. LERCANIDIPINE [Concomitant]
     Active Substance: LERCANIDIPINE
     Dosage: 10 MG, BID
  12. TORSEMIDE [Concomitant]
     Active Substance: TORSEMIDE
     Dosage: 5 MG, QD
  13. PANTOZOL [Concomitant]
     Active Substance: PANTOPRAZOLE SODIUM
     Dosage: 20 MG, QD

REACTIONS (5)
  - Hepatotoxicity [Unknown]
  - Malignant neoplasm progression [Unknown]
  - Diarrhoea [Unknown]
  - Nausea [Recovered/Resolved]
  - Vomiting [Recovered/Resolved]

NARRATIVE: CASE EVENT DATE: 20220316
